FAERS Safety Report 9424250 (Version 2)
Quarter: 2013Q3

REPORT INFORMATION
  Report Type: Spontaneous
  Country: US (occurrence: US)
  Receive Date: 20130729
  Receipt Date: 20130816
  Transmission Date: 20140515
  Serious: Yes (Other)
  Sender: FDA-Public Use
  Company Number: US-AMGEN-USASP2013050797

PATIENT
  Age: 58 Year
  Sex: Male
  Weight: 71 kg

DRUGS (15)
  1. ARANESP [Suspect]
     Indication: PRODUCT USED FOR UNKNOWN INDICATION
     Dosage: 250 MUG, QWK
     Route: 042
  2. SENSIPAR [Concomitant]
     Indication: PRODUCT USED FOR UNKNOWN INDICATION
     Dosage: UNK
  3. ASPIRIN [Concomitant]
  4. COZAAR [Concomitant]
  5. B VITAMIN COMP                     /00003501/ [Concomitant]
  6. MEGACE [Concomitant]
  7. METOPROLOL [Concomitant]
  8. MINOXIDIL [Concomitant]
  9. OMEPRAZOLE [Concomitant]
  10. RENAGEL                            /01459901/ [Concomitant]
  11. SERTRALINE [Concomitant]
  12. VENOFER [Concomitant]
     Dosage: 100 MG, Q2WK
     Route: 042
     Dates: start: 20120208
  13. VITAMIN D                          /00107901/ [Concomitant]
  14. ZEMPLAR [Concomitant]
  15. ZOFRAN                             /00955301/ [Concomitant]

REACTIONS (2)
  - Haemoglobin abnormal [Unknown]
  - Drug ineffective [Unknown]
